FAERS Safety Report 8571748-2 (Version None)
Quarter: 2012Q3

REPORT INFORMATION
  Report Type: 
  Country: None (occurrence: None)
  Receive Date: 20120806
  Receipt Date: 20120803
  Transmission Date: 20120928
  Serious: Yes (Death, Hospitalization)
  Sender: FDA-Public Use
  Company Number: PHHY2012TH067222

PATIENT
  Age: 80 Year
  Sex: Male

DRUGS (2)
  1. ZOLEDRONOC ACID [Suspect]
     Indication: OSTEOPOROSIS
     Dosage: 5 MG YEARLY
     Route: 042
  2. CALCIUM [Concomitant]

REACTIONS (4)
  - DEATH [None]
  - FALL [None]
  - APHAGIA [None]
  - VOMITING [None]
